FAERS Safety Report 18474898 (Version 1)
Quarter: 2020Q4

REPORT INFORMATION
  Report Type: Report from Study
  Country: JP (occurrence: JP)
  Receive Date: 20201106
  Receipt Date: 20201106
  Transmission Date: 20210114
  Serious: Yes (Other)
  Sender: FDA-Public Use
  Company Number: JP-ASTRAZENECA-2020SF43692

PATIENT
  Age: 63 Year
  Sex: Male

DRUGS (1)
  1. GEFITINIB. [Suspect]
     Active Substance: GEFITINIB
     Indication: NON-SMALL CELL LUNG CANCER STAGE IIIB
     Route: 048

REACTIONS (3)
  - Malignant neoplasm progression [Unknown]
  - EGFR gene mutation [Unknown]
  - Therapy non-responder [Unknown]
